FAERS Safety Report 5158088-9 (Version None)
Quarter: 2006Q4

REPORT INFORMATION
  Report Type: 
  Country: None (occurrence: None)
  Receive Date: 20061116
  Receipt Date: 20061106
  Transmission Date: 20070319
  Serious: Yes (Hospitalization)
  Sender: FDA-Public Use
  Company Number: 2006126730

PATIENT
  Age: 55 Year
  Sex: Female
  Weight: 92 kg

DRUGS (11)
  1. SUTENT [Suspect]
     Indication: GASTROINTESTINAL STROMAL TUMOUR
     Dosage: 50 MG (50 MG, 1 IN 1 D), ORAL
     Route: 048
     Dates: start: 20060905
  2. METFOMIN [Concomitant]
  3. GLIMEPIRIDE [Concomitant]
  4. ZOLPIDEM TARTRATE [Concomitant]
  5. ALLOPURINOL [Concomitant]
  6. RAMIPRIL [Concomitant]
  7. CITALOPRAM HYDROBROMIDE [Concomitant]
  8. METOCLOPRAMIDE [Concomitant]
  9. THIETHYLPERAZINE [Concomitant]
  10. METAMIZOLE [Concomitant]
  11. OMEPRAZOLE [Concomitant]

REACTIONS (4)
  - DEHYDRATION [None]
  - NAUSEA [None]
  - VERTIGO [None]
  - VOMITING [None]
